FAERS Safety Report 5452615-X (Version None)
Quarter: 2007Q3

REPORT INFORMATION
  Report Type: 
  Country: None (occurrence: None)
  Receive Date: 20070914
  Receipt Date: 20070912
  Transmission Date: 20080115
  Serious: Yes (Other)
  Sender: FDA-Public Use
  Company Number: US-BRISTOL-MYERS SQUIBB COMPANY-13906722

PATIENT
  Age: 62 Year
  Sex: Male
  Weight: 143 kg

DRUGS (5)
  1. WARFARIN SODIUM [Suspect]
     Indication: ATRIAL FIBRILLATION
     Route: 048
     Dates: start: 20070101, end: 20070620
  2. WARFARIN SODIUM [Suspect]
     Indication: ANTICOAGULANT THERAPY
     Route: 048
     Dates: start: 20070101, end: 20070620
  3. ANGIOMAX [Suspect]
     Indication: PERCUTANEOUS CORONARY INTERVENTION
     Dosage: BIVALIRUDIN GIVEN 0.25 MG/KG INTRAVENOUSLY,0.75 MG/KG AS IV BOLUS,1.75MG/KG,0.25 MG/KG AS IVDRIP.
     Route: 040
     Dates: start: 20070621, end: 20070621
  4. ANGIOMAX [Suspect]
     Indication: ACUTE CORONARY SYNDROME
     Dosage: BIVALIRUDIN GIVEN 0.25 MG/KG INTRAVENOUSLY,0.75 MG/KG AS IV BOLUS,1.75MG/KG,0.25 MG/KG AS IVDRIP.
     Route: 040
     Dates: start: 20070621, end: 20070621
  5. SOTALOL HYDROCHLORIDE [Concomitant]

REACTIONS (2)
  - ARRHYTHMIA [None]
  - INTERNATIONAL NORMALISED RATIO INCREASED [None]
